FAERS Safety Report 9616936 (Version 3)
Quarter: 2013Q4

REPORT INFORMATION
  Report Type: Report from Study
  Country: BR (occurrence: BR)
  Receive Date: 20131011
  Receipt Date: 20131128
  Transmission Date: 20140711
  Serious: Yes (Other)
  Sender: FDA-Public Use
  Company Number: BR-SA-CERZ-1003159

PATIENT
  Sex: Female

DRUGS (2)
  1. CEREZYME [Suspect]
     Indication: GAUCHER^S DISEASE
     Dosage: 13 VIALS
     Route: 042
     Dates: start: 20080101
  2. CEREZYME [Suspect]
     Indication: GAUCHER^S DISEASE
     Dosage: 26 VIALS
     Route: 042

REACTIONS (1)
  - Fracture [Unknown]
